FAERS Safety Report 4564199-9 (Version None)
Quarter: 2005Q1

REPORT INFORMATION
  Report Type: 
  Country: None (occurrence: None)
  Receive Date: 20050126
  Receipt Date: 20050107
  Transmission Date: 20050727
  Serious: Yes (Death)
  Sender: FDA-Public Use
  Company Number: DSA_25219_2004

PATIENT
  Age: 56 Year
  Sex: Female

DRUGS (6)
  1. LORAZEPAM [Suspect]
     Indication: ANXIETY
     Dosage: 0.5 MG Q DAY PO
     Route: 048
     Dates: start: 20040817, end: 20040822
  2. LORAZEPAM [Suspect]
     Indication: ANXIETY
     Dosage: 1 MG Q DAY PO
     Route: 048
     Dates: start: 20040721, end: 20040816
  3. TRUXAL [Suspect]
     Dosage: 60 MG Q DAY
     Dates: start: 20040812, end: 20040822
  4. CIPRALEX [Suspect]
     Dosage: 20 MG Q DAY
     Dates: start: 20040722, end: 20040822
  5. CIPRALEX [Suspect]
     Dosage: 15 MG Q DAY
     Dates: start: 20040715, end: 20040721
  6. CIPRALEX [Suspect]
     Dosage: 10 MG Q DAY
     Dates: start: 20040624, end: 20040718

REACTIONS (2)
  - AGITATION [None]
  - COMPLETED SUICIDE [None]
